FAERS Safety Report 24620665 (Version 2)
Quarter: 2024Q4

REPORT INFORMATION
  Report Type: Spontaneous
  Country: US (occurrence: US)
  Receive Date: 20241114
  Receipt Date: 20241115
  Transmission Date: 20250114
  Serious: Yes (Other)
  Sender: PFIZER
  Company Number: US-MLMSERVICE-20241101-PI248410-00312-1

PATIENT
  Age: 33 Year
  Sex: Female

DRUGS (1)
  1. TESTOSTERONE CYPIONATE [Suspect]
     Active Substance: TESTOSTERONE CYPIONATE
     Indication: Hormone therapy
     Dosage: 200 MG/ML EVERY 2 WEEKS
     Dates: start: 2009

REACTIONS (6)
  - Idiopathic intracranial hypertension [Recovering/Resolving]
  - Papilloedema [Recovering/Resolving]
  - Blood testosterone free increased [Unknown]
  - Cerebrospinal fluid leakage [Unknown]
  - Blood testosterone increased [Unknown]
  - Off label use [Unknown]
